FAERS Safety Report 19075295 (Version 1)
Quarter: 2021Q1

REPORT INFORMATION
  Report Type: Spontaneous
  Country: US (occurrence: US)
  Receive Date: 20210330
  Receipt Date: 20210330
  Transmission Date: 20210420
  Serious: No
  Sender: FDA-Public Use
  Company Number: US-ROCHE-2582996

PATIENT
  Sex: Female

DRUGS (2)
  1. ERIVEDGE [Suspect]
     Active Substance: VISMODEGIB
     Indication: BASAL CELL CARCINOMA
     Route: 048
     Dates: start: 202002
  2. ERIVEDGE [Suspect]
     Active Substance: VISMODEGIB
     Indication: COVID-19

REACTIONS (6)
  - Pain [Unknown]
  - Off label use [Unknown]
  - Taste disorder [Unknown]
  - Product use in unapproved indication [Unknown]
  - Illness [Unknown]
  - Fatigue [Unknown]
